FAERS Safety Report 13468623 (Version 1)
Quarter: 2017Q2

REPORT INFORMATION
  Report Type: Spontaneous
  Country: GB (occurrence: GB)
  Receive Date: 20170421
  Receipt Date: 20170421
  Transmission Date: 20170830
  Serious: Yes (Disabling)
  Sender: FDA-Public Use
  Company Number: GB-MUNDIPHARMA DS AND PHARMACOVIGILANCE-GBR-2017-0044721

PATIENT
  Age: 62 Year
  Sex: Male
  Weight: 123.8 kg

DRUGS (2)
  1. TARGINACT [Suspect]
     Active Substance: NALOXONE HYDROCHLORIDE\OXYCODONE HYDROCHLORIDE
     Indication: PAIN
     Dosage: 50 MG, UNK
     Route: 048
     Dates: start: 2013
  2. GABAPENTIN. [Concomitant]
     Active Substance: GABAPENTIN

REACTIONS (7)
  - Fatigue [Unknown]
  - Yawning [Unknown]
  - Dry mouth [Unknown]
  - Depression [Unknown]
  - Abnormal weight gain [Unknown]
  - Decreased activity [Unknown]
  - Decreased appetite [Unknown]
